FAERS Safety Report 20718154 (Version 2)
Quarter: 2022Q2

REPORT INFORMATION
  Report Type: Spontaneous
  Country: HU (occurrence: HU)
  Receive Date: 20220418
  Receipt Date: 20220429
  Transmission Date: 20220721
  Serious: Yes (Other)
  Sender: FDA-Public Use
  Company Number: HU-UCBSA-2022021460

PATIENT
  Age: 71 Year
  Sex: Female

DRUGS (1)
  1. NEUPRO [Suspect]
     Active Substance: ROTIGOTINE
     Indication: Product used for unknown indication
     Dosage: 2MG PATCH DAILY
     Dates: start: 202202, end: 202204

REACTIONS (5)
  - Suicide attempt [Recovered/Resolved]
  - Delusion [Recovered/Resolved]
  - Mental disorder [Recovered/Resolved]
  - Dizziness [Not Recovered/Not Resolved]
  - Head discomfort [Not Recovered/Not Resolved]

NARRATIVE: CASE EVENT DATE: 20220301
